FAERS Safety Report 20842812 (Version 1)
Quarter: 2022Q2

REPORT INFORMATION
  Report Type: Spontaneous
  Country: CN (occurrence: CN)
  Receive Date: 20220518
  Receipt Date: 20220518
  Transmission Date: 20220721
  Serious: Yes (Hospitalization, Other)
  Sender: FDA-Public Use
  Company Number: CN-GYP-001070

PATIENT
  Age: 45 Year
  Sex: Male

DRUGS (2)
  1. PREDNISONE [Suspect]
     Active Substance: PREDNISONE
     Indication: Hypophysitis
     Route: 065
  2. LEVOTHYROXINE [Suspect]
     Active Substance: LEVOTHYROXINE
     Indication: Hypophysitis
     Route: 065

REACTIONS (6)
  - Gastroenteritis [Recovered/Resolved]
  - Type 1 diabetes mellitus [Recovered/Resolved]
  - Ketoacidosis [Recovered/Resolved]
  - Hypopituitarism [Unknown]
  - Hypothalamo-pituitary disorder [Unknown]
  - Product use in unapproved indication [Unknown]
